FAERS Safety Report 21066537 (Version 1)
Quarter: 2022Q3

REPORT INFORMATION
  Report Type: Spontaneous
  Country: US (occurrence: US)
  Receive Date: 20220711
  Receipt Date: 20220711
  Transmission Date: 20221027
  Serious: Yes (Other)
  Sender: FDA-Public Use
  Company Number: US-SA-SAC20220704001359

PATIENT
  Age: 47 Year
  Sex: Female

DRUGS (2)
  1. ZANTAC [Suspect]
     Active Substance: RANITIDINE HYDROCHLORIDE
     Indication: Dyspepsia
     Dosage: 75 MG, QD
     Dates: start: 198502
  2. ZANTAC [Suspect]
     Active Substance: RANITIDINE HYDROCHLORIDE
     Indication: Gastrooesophageal reflux disease
     Dosage: 150 MG, QD
     Dates: end: 201602

REACTIONS (6)
  - Ovarian cancer stage I [Recovering/Resolving]
  - Cervix carcinoma stage I [Recovering/Resolving]
  - Gastrointestinal carcinoma [Unknown]
  - Hepatic cancer stage IV [Unknown]
  - Pancreatic carcinoma stage IV [Not Recovered/Not Resolved]
  - Small intestine carcinoma stage IV [Not Recovered/Not Resolved]

NARRATIVE: CASE EVENT DATE: 20060101
